FAERS Safety Report 8057933-7 (Version None)
Quarter: 2011Q4

REPORT INFORMATION
  Report Type: 
  Country: None (occurrence: None)
  Receive Date: 20111220
  Receipt Date: 20110308
  Transmission Date: 20120403
  Serious: Yes (Hospitalization)
  Sender: FDA-Public Use
  Company Number: PHHY2011US17507

PATIENT
  Sex: Female

DRUGS (1)
  1. MYFORTIC [Suspect]
     Dosage: 360 MG, BID, ORAL
     Route: 048
     Dates: start: 20040101

REACTIONS (2)
  - TRANSPLANT REJECTION [None]
  - PANCREATITIS [None]
